FAERS Safety Report 4652250-7 (Version None)
Quarter: 2005Q2

REPORT INFORMATION
  Report Type: 
  Country: None (occurrence: None)
  Receive Date: 20050502
  Receipt Date: 20050418
  Transmission Date: 20051028
  Serious: Yes (Hospitalization, Disabling, Other)
  Sender: FDA-Public Use
  Company Number: 2005025461

PATIENT
  Sex: Male
  Weight: 92.9874 kg

DRUGS (11)
  1. CELEBREX [Suspect]
     Indication: ARTHRITIS
     Dosage: 200 MG (200 MG, 1 IN 1 D), ORAL
     Route: 048
  2. MULTIVITAMINS (ASCORBIC ACID, ERGOCALCIFEROL, FOLIC ACID, NICOTINAMIDE [Concomitant]
  3. VENLAFAXINE HCL [Concomitant]
  4. HYZAAR [Concomitant]
  5. TRAZODONE HCL [Concomitant]
  6. WARFARIN SODIUM [Concomitant]
  7. GABEPENTIN (GABAPENTIN) [Concomitant]
  8. FUROSEMIDE [Concomitant]
  9. POTASSIUM CHLORIDE [Concomitant]
  10. SIMVASTATIN [Concomitant]
  11. BUPROPION HYDROCHLORIDE [Concomitant]

REACTIONS (11)
  - ABDOMINAL ADHESIONS [None]
  - ACTIVITIES OF DAILY LIVING IMPAIRED [None]
  - CARDIAC DISORDER [None]
  - CARDIAC FAILURE [None]
  - CORONARY ARTERY DISEASE [None]
  - DYSPNOEA [None]
  - ELECTROCARDIOGRAM ABNORMAL [None]
  - FEELING ABNORMAL [None]
  - HEPARIN-INDUCED THROMBOCYTOPENIA [None]
  - MEMORY IMPAIRMENT [None]
  - VASCULAR BYPASS GRAFT [None]
